FAERS Safety Report 8422113-X (Version None)
Quarter: 2012Q2

REPORT INFORMATION
  Report Type: 
  Country: None (occurrence: None)
  Receive Date: 20120608
  Receipt Date: 20120601
  Transmission Date: 20120825
  Serious: Yes (Hospitalization)
  Sender: FDA-Public Use
  Company Number: US-UCBSA-053259

PATIENT
  Age: 4 Year
  Sex: Male
  Weight: 18.6 kg

DRUGS (15)
  1. LACOSAMIDE [Suspect]
     Indication: PARTIAL SEIZURES
     Route: 048
     Dates: start: 20120310, end: 20120301
  2. TOPAMAX [Concomitant]
     Indication: EPILEPSY
     Dates: start: 20101201
  3. MIRALAX [Concomitant]
     Indication: CONSTIPATION
     Dosage: QAM
     Dates: start: 20090101
  4. LACOSAMIDE [Suspect]
     Route: 048
     Dates: start: 20120307, end: 20120309
  5. CLORAZEPATE DIPOTASSIUM [Concomitant]
     Dates: start: 20120312
  6. ZYRTEC [Concomitant]
     Indication: SEASONAL ALLERGY
     Dosage: QAM
     Dates: start: 20110101
  7. LAMOTRIGINE [Concomitant]
     Indication: EPILEPSY
     Dates: start: 20110701
  8. FLONASE [Concomitant]
     Indication: ASTHMA
     Dosage: 1 SPRAY
     Dates: start: 20111201
  9. TRILEPTAL [Concomitant]
     Indication: EPILEPSY
     Dates: start: 20090101
  10. ADVAIR DISKUS 100/50 [Concomitant]
     Indication: ASTHMA
     Dosage: 2 PUFFS
     Dates: start: 20090101
  11. DIASTAT [Concomitant]
     Indication: EPILEPSY
     Dates: start: 20090101
  12. FLOVENT [Concomitant]
     Indication: ASTHMA
     Dosage: 3 PUFFS, AS NECESSARY
     Dates: start: 20090101
  13. ALBUTEROL [Concomitant]
     Indication: ASTHMA
     Dosage: 4 PUFFS
     Dates: start: 20090101
  14. PRILOSEC [Concomitant]
     Indication: GASTROOESOPHAGEAL REFLUX DISEASE
     Dates: start: 20080101
  15. CLORAZEPATE DIPOTASSIUM [Concomitant]
     Indication: EPILEPSY
     Dates: start: 20120201, end: 20120203

REACTIONS (1)
  - STATUS EPILEPTICUS [None]
